FAERS Safety Report 25644350 (Version 1)
Quarter: 2025Q3

REPORT INFORMATION
  Report Type: Spontaneous
  Country: US (occurrence: US)
  Receive Date: 20250805
  Receipt Date: 20250805
  Transmission Date: 20251021
  Serious: Yes (Hospitalization)
  Sender: APOTEX
  Company Number: US-APOTEX-2025AP010977

PATIENT
  Age: 26 Year
  Sex: Female

DRUGS (9)
  1. CLOBAZAM [Interacting]
     Active Substance: CLOBAZAM
     Indication: Generalised tonic-clonic seizure
     Dosage: 10 MILLIGRAM, Q.H.S.
     Route: 065
     Dates: start: 2023, end: 2023
  2. CLOBAZAM [Interacting]
     Active Substance: CLOBAZAM
     Dosage: 20 MILLIGRAM, Q.H.S.
     Route: 065
     Dates: start: 2023, end: 2023
  3. CLOBAZAM [Interacting]
     Active Substance: CLOBAZAM
     Dosage: 30 MILLIGRAM, Q.H.S.
     Route: 065
     Dates: start: 2023, end: 2023
  4. CLOBAZAM [Interacting]
     Active Substance: CLOBAZAM
     Dosage: 40 MILLIGRAM, Q.H.S.
     Route: 065
     Dates: start: 2023, end: 2023
  5. CLOBAZAM [Interacting]
     Active Substance: CLOBAZAM
     Dosage: 30 MILLIGRAM, Q.H.S.
     Route: 065
     Dates: start: 2023, end: 2023
  6. CLOBAZAM [Interacting]
     Active Substance: CLOBAZAM
     Dosage: 20 MILLIGRAM, Q.H.S.
     Route: 065
     Dates: start: 2023, end: 2023
  7. CENOBAMATE [Interacting]
     Active Substance: CENOBAMATE
     Indication: Generalised tonic-clonic seizure
     Route: 065
     Dates: start: 2023
  8. CENOBAMATE [Interacting]
     Active Substance: CENOBAMATE
     Dosage: 200 MILLIGRAM, Q.H.S.
     Route: 065
     Dates: start: 2023
  9. LAMOTRIGINE [Concomitant]
     Active Substance: LAMOTRIGINE
     Indication: Generalised tonic-clonic seizure
     Dosage: 700 MILLIGRAM, QD
     Route: 065

REACTIONS (2)
  - Hypersomnia [Recovered/Resolved]
  - Drug interaction [Unknown]
